FAERS Safety Report 6845210-9 (Version None)
Quarter: 2010Q3

REPORT INFORMATION
  Report Type: 
  Country: None (occurrence: None)
  Receive Date: 20100715
  Receipt Date: 20070813
  Transmission Date: 20110219
  Serious: No
  Sender: FDA-Public Use
  Company Number: US-PFIZER INC-2007068555

PATIENT
  Sex: Female
  Weight: 59.09 kg

DRUGS (6)
  1. CHANTIX [Suspect]
     Indication: SMOKING CESSATION THERAPY
     Dates: start: 20070701
  2. SYNTHROID [Concomitant]
  3. VERAPAMIL [Concomitant]
  4. SIMVASTATIN [Concomitant]
  5. CITALOPRAM HYDROBROMIDE [Concomitant]
  6. ADVAIR DISKUS 100/50 [Concomitant]

REACTIONS (2)
  - PRURITUS [None]
  - RASH [None]
